FAERS Safety Report 5788310-7 (Version None)
Quarter: 2008Q2

REPORT INFORMATION
  Report Type: 
  Country: None (occurrence: None)
  Receive Date: 20080625
  Receipt Date: 20080613
  Transmission Date: 20081010
  Serious: Yes (Hospitalization)
  Sender: FDA-Public Use
  Company Number: JP-PFIZER INC-2008045678

PATIENT
  Sex: Male

DRUGS (6)
  1. ESTRACYT [Suspect]
     Indication: PROSTATE CANCER
     Dosage: DAILY DOSE:626.8MG
     Route: 048
     Dates: start: 20080425, end: 20080509
  2. DICLOFENAC SODIUM [Concomitant]
     Indication: ANALGESIA
     Route: 054
  3. PROPIVERINE HYDROCHLORIDE [Concomitant]
     Indication: DYSURIA
     Route: 048
     Dates: start: 20080307
  4. GOSERELIN ACETATE [Concomitant]
     Indication: PROSTATE CANCER
     Route: 058
     Dates: start: 20080404, end: 20080404
  5. DOMPERIDONE [Concomitant]
     Indication: PROPHYLAXIS OF NAUSEA AND VOMITING
     Route: 048
     Dates: start: 20080425, end: 20080426
  6. ERYTHROMYCIN STEARATE [Concomitant]
     Indication: BRONCHIECTASIS
     Route: 048

REACTIONS (1)
  - INTERSTITIAL LUNG DISEASE [None]
